FAERS Safety Report 17788581 (Version 1)
Quarter: 2020Q2

REPORT INFORMATION
  Report Type: Spontaneous
  Country: US (occurrence: US)
  Receive Date: 20200514
  Receipt Date: 20200514
  Transmission Date: 20200714
  Serious: Yes (Other)
  Sender: FDA-Public Use
  Company Number: US-UPSHER-SMITH LABORATORIES, LLC-2020USL00244

PATIENT
  Sex: Male

DRUGS (2)
  1. UNSPECIFIED MEDICATIONS [Suspect]
     Active Substance: UNSPECIFIED INGREDIENT
     Indication: PULMONARY FIBROSIS
  2. AMIODARONE HYDROCHLORIDE. [Suspect]
     Active Substance: AMIODARONE HYDROCHLORIDE
     Indication: ATRIAL FIBRILLATION
     Dosage: UNK
     Route: 048
     Dates: start: 200501

REACTIONS (11)
  - Hypertension [Unknown]
  - Unevaluable event [Unknown]
  - Pulmonary fibrosis [Unknown]
  - Visual impairment [Unknown]
  - Cardiac failure congestive [Unknown]
  - Cataract [Unknown]
  - Oedema [Unknown]
  - Gait disturbance [Unknown]
  - Asthenia [Unknown]
  - Cardiomegaly [Unknown]
  - Off label use [Unknown]

NARRATIVE: CASE EVENT DATE: 200501
